FAERS Safety Report 9915695 (Version 1)
Quarter: 2014Q1

REPORT INFORMATION
  Report Type: Spontaneous
  Country: US (occurrence: None)
  Receive Date: 20140219
  Receipt Date: 20140219
  Transmission Date: 20141002
  Serious: Yes (Life-Threatening, Disabling)
  Sender: FDA-Public Use
  Company Number: None

PATIENT
  Age: 76 Year
  Sex: Female
  Weight: 94.35 kg

DRUGS (17)
  1. TRACLEER [Suspect]
     Indication: PULMONARY HYPERTENSION
     Route: 048
     Dates: start: 20130828, end: 20131114
  2. REVATIO [Suspect]
     Indication: PULMONARY HYPERTENSION
     Route: 048
     Dates: start: 20131010
  3. BUMETANIDE [Concomitant]
  4. DIGOXIN [Concomitant]
  5. IRON [Concomitant]
  6. LOSARTAN [Concomitant]
  7. LYRICA [Concomitant]
  8. METALAZONE [Concomitant]
  9. POTASSIUM CHLORIDE [Concomitant]
  10. SERTRALINE [Concomitant]
  11. SPIROLACTONE [Concomitant]
  12. CALCIUM [Concomitant]
  13. BABY ASPIRIN 81 MG [Concomitant]
  14. MIRALAX [Concomitant]
  15. TYLENOL [Concomitant]
  16. STOOL SOFTENER [Concomitant]
  17. LEVOTHYROXINE [Concomitant]

REACTIONS (2)
  - Fluid retention [None]
  - Headache [None]
